FAERS Safety Report 4891157-7 (Version None)
Quarter: 2006Q1

REPORT INFORMATION
  Report Type: 
  Country: None (occurrence: None)
  Receive Date: 20060125
  Receipt Date: 20050718
  Transmission Date: 20060701
  Serious: Yes (Hospitalization, Other)
  Sender: FDA-Public Use
  Company Number: US-MERCK-0507USA02244

PATIENT
  Age: 81 Year
  Sex: Female

DRUGS (7)
  1. VIOXX [Suspect]
     Indication: ARTHRITIS
     Route: 048
     Dates: start: 20000512
  2. XANAX [Concomitant]
     Route: 065
  3. LIPITOR [Concomitant]
     Route: 065
  4. LANOXIN [Concomitant]
     Route: 065
  5. PREMARIN [Concomitant]
     Route: 065
  6. SYNTHROID [Concomitant]
     Route: 065
  7. ZOLOFT [Concomitant]
     Route: 065

REACTIONS (28)
  - ABDOMINAL DISTENSION [None]
  - AORTIC ANEURYSM [None]
  - ARTHROPOD STING [None]
  - BACK INJURY [None]
  - CARDIAC FAILURE CONGESTIVE [None]
  - CORONARY ARTERY DISEASE [None]
  - CYST [None]
  - DIZZINESS [None]
  - EYELID INFECTION [None]
  - FALL [None]
  - GLUCOSE TOLERANCE IMPAIRED [None]
  - GRANULOMA [None]
  - HAEMATOCRIT DECREASED [None]
  - HYPERCALCAEMIA [None]
  - HYPERSENSITIVITY [None]
  - LABYRINTHITIS [None]
  - LIGAMENT SPRAIN [None]
  - MUSCLE SPASMS [None]
  - MYOCARDIAL INFARCTION [None]
  - PALPITATIONS [None]
  - PTERYGIUM [None]
  - RENAL FAILURE [None]
  - SINUSITIS [None]
  - SKIN PAPILLOMA [None]
  - STRESS INCONTINENCE [None]
  - TEMPOROMANDIBULAR JOINT SYNDROME [None]
  - TOOTH ABSCESS [None]
  - URINARY TRACT INFECTION [None]
